FAERS Safety Report 8600581-8 (Version None)
Quarter: 2012Q3

REPORT INFORMATION
  Report Type: 
  Country: None (occurrence: None)
  Receive Date: 20120817
  Receipt Date: 20120809
  Transmission Date: 20120928
  Serious: Yes (Hospitalization)
  Sender: FDA-Public Use
  Company Number: US-BAYER-2012-082421

PATIENT
  Age: 40 Year
  Sex: Female
  Weight: 86.168 kg

DRUGS (15)
  1. YASMIN [Suspect]
  2. RHINOCORT [Concomitant]
     Dosage: 32 MCG/EVERY DAY IN EACH NOSTRIL
     Route: 045
  3. ALBUTEROL [Concomitant]
     Dosage: 2 PUFFS PRN
  4. PROMETHAZINE [Concomitant]
     Indication: NAUSEA
     Dosage: 25 MG, TID PRN
     Route: 048
  5. YAZ [Suspect]
  6. DROSPIRENONE AND ETHINYL ESTRADIOL [Suspect]
  7. ZITHROMAX [Concomitant]
     Dosage: 250 MG TAB; TAKE 2 TABLET EVERY DAY FOR 1 DAY THEN 1 TABLET ONCE DAILY FOR 4 DAYS
     Route: 048
  8. PREDNISONE TAB [Concomitant]
     Dosage: 20 MG, UNK
  9. ALPRAZOLAM [Concomitant]
     Dosage: 2 MG, UNK
  10. PROZAC [Concomitant]
     Dosage: 40 MG, UNK
     Route: 048
  11. VENTOLIN HFA [Concomitant]
     Dosage: 90 ?G, BID PRN
     Route: 045
  12. VIIBRYD [Concomitant]
     Dosage: 40MG EVERY DAY
     Route: 048
     Dates: end: 20120130
  13. XANAX XR [Concomitant]
     Dosage: 2 MG 24 HR TAB 3 TIMES EVERY DAY
     Route: 048
     Dates: end: 20120130
  14. XANAX [Concomitant]
     Dosage: 2 MG, TID
     Route: 048
  15. AZITHROMYCIN [Concomitant]
     Dosage: 250 MG, UNK

REACTIONS (1)
  - PULMONARY EMBOLISM [None]
